FAERS Safety Report 25890044 (Version 1)
Quarter: 2025Q4

REPORT INFORMATION
  Report Type: Spontaneous
  Country: RU (occurrence: RU)
  Receive Date: 20251007
  Receipt Date: 20251007
  Transmission Date: 20260117
  Serious: Yes (Other)
  Sender: RANBAXY
  Company Number: RU-SUN PHARMACEUTICAL INDUSTRIES LTD-2025R1-530044

PATIENT
  Age: 25 Year
  Sex: Male
  Weight: 106 kg

DRUGS (1)
  1. SOTRET [Suspect]
     Active Substance: ISOTRETINOIN
     Indication: Acne
     Dosage: 0.57MG/KG
     Route: 048
     Dates: start: 20210628, end: 20211229

REACTIONS (5)
  - Pyoderma [Unknown]
  - Lip dry [Unknown]
  - Skin fissures [Unknown]
  - Dry eye [Unknown]
  - Dry skin [Unknown]

NARRATIVE: CASE EVENT DATE: 20210802
